FAERS Safety Report 11377053 (Version 4)
Quarter: 2016Q1

REPORT INFORMATION
  Report Type: Spontaneous
  Country: US (occurrence: US)
  Receive Date: 20150813
  Receipt Date: 20160311
  Transmission Date: 20160525
  Serious: Yes (Hospitalization, Disabling, Other)
  Sender: FDA-Public Use
  Company Number: US-009507513-1508USA005593

PATIENT
  Sex: Female
  Weight: 72.56 kg

DRUGS (1)
  1. NUVARING [Suspect]
     Active Substance: ETHINYL ESTRADIOL\ETONOGESTREL
     Indication: CONTRACEPTION
     Dosage: 0.12-0.015MG / VAGINAL RING INSERTED FOR 3 WEEKS, THEN REMOVED FOR 1 WEEK
     Route: 067
     Dates: start: 2007, end: 20130827

REACTIONS (32)
  - Spinal column stenosis [Not Recovered/Not Resolved]
  - Abortion spontaneous [Unknown]
  - Herpes zoster [Unknown]
  - Localised intraabdominal fluid collection [Unknown]
  - Generalised anxiety disorder [Unknown]
  - Herpes simplex [Unknown]
  - Pain [Unknown]
  - Intervertebral disc degeneration [Not Recovered/Not Resolved]
  - Facial bones fracture [Unknown]
  - Nasal operation [Unknown]
  - Depression [Unknown]
  - Leukopenia [Unknown]
  - Eosinophilic pustular folliculitis [Unknown]
  - Anogenital dysplasia [Unknown]
  - Lung consolidation [Unknown]
  - Plantar fasciitis [Unknown]
  - Nausea [Unknown]
  - Decreased appetite [Unknown]
  - Pulmonary embolism [Recovered/Resolved]
  - Ligament sprain [Unknown]
  - Tooth fracture [Unknown]
  - HIV infection [Unknown]
  - Liver function test increased [Unknown]
  - Weight decreased [Unknown]
  - Craniocerebral injury [Unknown]
  - Depression [Unknown]
  - Gastrointestinal disorder [Unknown]
  - Constipation [Unknown]
  - Fibromyalgia [Unknown]
  - Drug dose omission [Unknown]
  - Rosacea [Unknown]
  - Post-traumatic stress disorder [Unknown]

NARRATIVE: CASE EVENT DATE: 2008
